FAERS Safety Report 9173617 (Version 1)
Quarter: 2013Q1

REPORT INFORMATION
  Report Type: Spontaneous
  Country: CN (occurrence: None)
  Receive Date: 20130318
  Receipt Date: 20130318
  Transmission Date: 20140127
  Serious: Yes (Hospitalization, Other)
  Sender: FDA-Public Use
  Company Number: 2013/063

PATIENT
  Age: 91 Year
  Sex: Female

DRUGS (6)
  1. LEVETIRACETAM (NO PREF. NAME) [Suspect]
     Indication: CONVULSION
  2. AMLODIPINE [Concomitant]
  3. METOCLOPRAMIDE [Concomitant]
  4. SENNOSISDE [Concomitant]
  5. ESOMEPRAZOLE [Concomitant]
  6. BENZYL HYDROCHLOROTHIAZIDE NO. PREF. NAME) [Concomitant]

REACTIONS (1)
  - Acute generalised exanthematous pustulosis [None]
